FAERS Safety Report 5403313-X (Version None)
Quarter: 2007Q3

REPORT INFORMATION
  Report Type: 
  Country: None (occurrence: None)
  Receive Date: 20070801
  Receipt Date: 20070724
  Transmission Date: 20080115
  Serious: Yes (Other)
  Sender: FDA-Public Use
  Company Number: DE-ABBOTT-07P-062-0375524-00

PATIENT
  Sex: Male

DRUGS (1)
  1. ERGENYL CHRONO TABLETS [Suspect]
     Indication: EPILEPSY
     Route: 048
     Dates: start: 20070706

REACTIONS (2)
  - DRUG INEFFECTIVE [None]
  - EPILEPSY [None]
